FAERS Safety Report 24040366 (Version 2)
Quarter: 2024Q3

REPORT INFORMATION
  Report Type: Spontaneous
  Country: US (occurrence: US)
  Receive Date: 20240702
  Receipt Date: 20240716
  Transmission Date: 20241017
  Serious: Yes (Hospitalization, Other)
  Sender: HIKMA
  Company Number: US-MLMSERVICE-20240611-PI091830-00043-1

PATIENT
  Age: 6 Year
  Sex: Female
  Weight: 24.5 kg

DRUGS (4)
  1. ALLOPURINOL [Suspect]
     Active Substance: ALLOPURINOL
     Dosage: 100 MILLIGRAM; 3 DOSES TOTAL TILL SIGNS OF REACTIONS ON HOSPITAL DAY 2; TREATMENT STOPPED AFTER 8 TO
     Route: 048
  2. ALLOPURINOL [Suspect]
     Active Substance: ALLOPURINOL
     Indication: Tumour lysis syndrome
     Dosage: 10 MILLIGRAM/KILOGRAM, QD
     Route: 065
  3. DEXAMETHASONE [Concomitant]
     Active Substance: DEXAMETHASONE
     Indication: B precursor type acute leukaemia
     Dosage: UNK, ON DAY-2 STARTED
     Route: 065
  4. VINCRISTINE [Concomitant]
     Active Substance: VINCRISTINE
     Indication: B precursor type acute leukaemia
     Dosage: UNK;ON DAY-2 STARTED
     Route: 065

REACTIONS (2)
  - Nephrolithiasis [Recovered/Resolved]
  - Acute kidney injury [Recovered/Resolved]
